FAERS Safety Report 5679955-3 (Version None)
Quarter: 2008Q1

REPORT INFORMATION
  Report Type: 
  Country: None (occurrence: None)
  Receive Date: 20080324
  Receipt Date: 20080312
  Transmission Date: 20080703
  Serious: Yes (Other)
  Sender: FDA-Public Use
  Company Number: GXKR2008GB02609

PATIENT
  Age: 38 Year
  Sex: Male

DRUGS (3)
  1. FLUOXETINE [Suspect]
     Indication: DEPRESSION
     Dosage: 20 MG, ORAL
     Route: 048
     Dates: start: 20040101
  2. ZIMOVANE(ZOPICLONE) [Suspect]
     Indication: INSOMNIA
     Dosage: 7.5 MG
     Dates: start: 20030101
  3. TEMAZEPAM [Concomitant]

REACTIONS (5)
  - ABNORMAL BEHAVIOUR [None]
  - ANTEROGRADE AMNESIA [None]
  - ANXIETY [None]
  - DEREALISATION [None]
  - LOSS OF CONSCIOUSNESS [None]
